FAERS Safety Report 22117478 (Version 1)
Quarter: 2023Q1

REPORT INFORMATION
  Report Type: Report from Study
  Country: US (occurrence: US)
  Receive Date: 20230321
  Receipt Date: 20230321
  Transmission Date: 20230418
  Serious: Yes (Hospitalization)
  Sender: FDA-Public Use
  Company Number: US-ABBVIE-4697160

PATIENT
  Age: 29 Year
  Sex: Female

DRUGS (1)
  1. HUMIRA [Suspect]
     Active Substance: ADALIMUMAB
     Indication: Hidradenitis
     Dosage: STRENGTH-40MG
     Route: 058

REACTIONS (2)
  - Bipolar disorder [Not Recovered/Not Resolved]
  - Bipolar I disorder [Unknown]

NARRATIVE: CASE EVENT DATE: 20230206
